FAERS Safety Report 22540569 (Version 1)
Quarter: 2023Q2

REPORT INFORMATION
  Report Type: Spontaneous
  Country: US (occurrence: US)
  Receive Date: 20230609
  Receipt Date: 20230609
  Transmission Date: 20230721
  Serious: Yes (Hospitalization)
  Sender: FDA-Public Use
  Company Number: US-PADAGIS-2023PAD00810

PATIENT

DRUGS (1)
  1. TESTOSTERONE CYPIONATE [Suspect]
     Active Substance: TESTOSTERONE CYPIONATE
     Indication: Performance enhancing product use
     Dosage: UNK
     Route: 030

REACTIONS (4)
  - Pulmonary arterial hypertension [Unknown]
  - Pulmonary embolism [None]
  - Deep vein thrombosis [Unknown]
  - Product use in unapproved indication [Unknown]
